FAERS Safety Report 19427556 (Version 1)
Quarter: 2021Q2

REPORT INFORMATION
  Report Type: Spontaneous
  Country: US (occurrence: US)
  Receive Date: 20210617
  Receipt Date: 20210617
  Transmission Date: 20210717
  Serious: No
  Sender: FDA-Public Use
  Company Number: US-TEVA-2021-US-1923122

PATIENT
  Sex: Female

DRUGS (13)
  1. COPAXONE [Suspect]
     Active Substance: GLATIRAMER ACETATE
     Indication: MULTIPLE SCLEROSIS
     Dosage: FORM STRENGTH: UNKNOWN
     Route: 065
  2. AMLODIPINE [Concomitant]
     Active Substance: AMLODIPINE BESYLATE
  3. TAFLUPROST [Concomitant]
     Active Substance: TAFLUPROST
  4. BUPROPRION HCL [Concomitant]
     Active Substance: BUPROPION HYDROCHLORIDE
  5. VITAMIN D3 [Concomitant]
     Active Substance: CHOLECALCIFEROL
  6. ASPIRIN. [Concomitant]
     Active Substance: ASPIRIN
  7. HEMP OIL [Concomitant]
     Active Substance: CANNABIS SATIVA SEED OIL
  8. FINGOLIMOD. [Concomitant]
     Active Substance: FINGOLIMOD
  9. CHLORTHALIDONE. [Concomitant]
     Active Substance: CHLORTHALIDONE
  10. MIRABEGRON [Concomitant]
     Active Substance: MIRABEGRON
  11. TIZANIDINE. [Concomitant]
     Active Substance: TIZANIDINE
  12. DONEPEZIL. [Concomitant]
     Active Substance: DONEPEZIL
  13. ALBUTEROL SULFATE. [Concomitant]
     Active Substance: ALBUTEROL SULFATE

REACTIONS (1)
  - Pharyngeal swelling [Unknown]
